FAERS Safety Report 4329039-1 (Version None)
Quarter: 2004Q1

REPORT INFORMATION
  Report Type: 
  Country: None (occurrence: None)
  Receive Date: 20040329
  Receipt Date: 20031212
  Transmission Date: 20041129
  Serious: No
  Sender: FDA-Public Use
  Company Number: 03P-163-0244699-00

PATIENT
  Age: 77 Year
  Sex: Female
  Weight: 58.514 kg

DRUGS (9)
  1. HUMIRA [Suspect]
     Indication: RHEUMATOID ARTHRITIS
     Dosage: 40 MG, 1 IN 2 WK SUBCUTANEOUS
     Route: 058
     Dates: start: 20030801, end: 20031101
  2. BUCINDOLOL HYDROCHLORIDE [Concomitant]
  3. MULTIVITAMIN [Concomitant]
  4. FOLIC ACID [Concomitant]
  5. BUDESONIDE [Concomitant]
  6. ALENDRAONATE SODIUM [Concomitant]
  7. ALBUTEROL SULFATE [Concomitant]
  8. CELECOXIB [Concomitant]
  9. FEXOFENADINE HYDROCHLORIDE [Concomitant]

REACTIONS (3)
  - INJECTION SITE HAEMORRHAGE [None]
  - INJECTION SITE PRURITUS [None]
  - INJECTION SITE SWELLING [None]
